FAERS Safety Report 5430309-4 (Version None)
Quarter: 2007Q3

REPORT INFORMATION
  Report Type: 
  Country: None (occurrence: None)
  Receive Date: 20070830
  Receipt Date: 20070824
  Transmission Date: 20080115
  Serious: Yes (Life-Threatening, Hospitalization, Other)
  Sender: FDA-Public Use
  Company Number: PHEH2007US10806

PATIENT
  Age: 48 Year
  Sex: Female
  Weight: 81.179 kg

DRUGS (10)
  1. ZOMETA [Suspect]
     Indication: OSTEOPOROSIS
     Dosage: UNK
     Route: 042
     Dates: start: 20070726, end: 20070726
  2. CIPRO [Concomitant]
     Indication: IMMOTILE CILIA SYNDROME
     Dosage: 750 MG, QD
     Dates: start: 20070714, end: 20070727
  3. ADVAIR DISKUS 100/50 [Concomitant]
     Indication: IMMOTILE CILIA SYNDROME
     Dosage: 250/50, BID
  4. MUCINEX [Concomitant]
     Indication: IMMOTILE CILIA SYNDROME
     Dosage: 600 MG, BID
  5. ZITHROMAX [Concomitant]
     Indication: IMMOTILE CILIA SYNDROME
     Dosage: 500 MG, QD
  6. VENTOLIN [Concomitant]
     Indication: IMMOTILE CILIA SYNDROME
     Dosage: 18 G, UNK
  7. PREDNISONE [Concomitant]
     Indication: IMMOTILE CILIA SYNDROME
  8. ANTIBIOTICS [Concomitant]
  9. CALCIUM WITH VITAMIN D [Concomitant]
     Indication: BONE DISORDER
     Dosage: 600 MG, UNK
  10. OXYGEN [Concomitant]

REACTIONS (27)
  - ANOREXIA [None]
  - ARTHRALGIA [None]
  - ASTHENIA [None]
  - BONE PAIN [None]
  - CARDIAC DISORDER [None]
  - CONSTIPATION [None]
  - DYSPNOEA [None]
  - FATIGUE [None]
  - FEELING ABNORMAL [None]
  - GAIT DISTURBANCE [None]
  - GINGIVAL DISCOLOURATION [None]
  - GINGIVAL SWELLING [None]
  - HEADACHE [None]
  - HYPERTENSION [None]
  - HYPOAESTHESIA [None]
  - MENTAL IMPAIRMENT [None]
  - MOOD ALTERED [None]
  - MYALGIA [None]
  - NAUSEA [None]
  - OCULAR HYPERAEMIA [None]
  - OEDEMA PERIPHERAL [None]
  - PAIN [None]
  - PAIN IN JAW [None]
  - PYREXIA [None]
  - RESPIRATORY RATE INCREASED [None]
  - TACHYCARDIA [None]
  - WEIGHT DECREASED [None]
